FAERS Safety Report 6047764-1 (Version None)
Quarter: 2009Q1

REPORT INFORMATION
  Report Type: 
  Country: None (occurrence: None)
  Receive Date: 20090123
  Receipt Date: 20090120
  Transmission Date: 20090719
  Serious: Yes (Hospitalization)
  Sender: FDA-Public Use
  Company Number: US-JNJFOC-20090105302

PATIENT
  Sex: Male
  Weight: 86.18 kg

DRUGS (6)
  1. DURAGESIC-100 [Suspect]
     Route: 062
  2. DURAGESIC-100 [Suspect]
     Indication: BACK PAIN
     Route: 062
  3. AVANDAMET [Concomitant]
     Indication: DIABETES MELLITUS
     Dosage: 2 MG/500 MG
     Route: 048
  4. FLOMAX [Concomitant]
     Dosage: FOR MALE PROSTRATE HEALTH
     Route: 048
  5. ZANAFLEX [Concomitant]
     Indication: MUSCLE RELAXANT THERAPY
     Dosage: 2 AT BED TIME
     Route: 048
  6. OXYCODONE [Concomitant]
     Indication: BACK PAIN
     Dosage: 7.5/325 MG EVERY 4-6 HOURS AS NEEDED
     Route: 048

REACTIONS (7)
  - APPLICATION SITE IRRITATION [None]
  - DRUG ADMINISTERED AT INAPPROPRIATE SITE [None]
  - INAPPROPRIATE SCHEDULE OF DRUG ADMINISTRATION [None]
  - INTERVERTEBRAL DISC DEGENERATION [None]
  - ROTATOR CUFF SYNDROME [None]
  - URTICARIA [None]
  - WRONG TECHNIQUE IN DRUG USAGE PROCESS [None]
